FAERS Safety Report 15767868 (Version 4)
Quarter: 2019Q2

REPORT INFORMATION
  Report Type: Spontaneous
  Country: DE (occurrence: DE)
  Receive Date: 20181227
  Receipt Date: 20190528
  Transmission Date: 20190711
  Serious: Yes (Hospitalization)
  Sender: FDA-Public Use
  Company Number: DE-MYLANLABS-2018M1095978

PATIENT
  Age: 48 Year
  Sex: Male

DRUGS (13)
  1. LEVETIRACETAM. [Suspect]
     Active Substance: LEVETIRACETAM
     Dosage: UNK
  2. VIMPAT [Suspect]
     Active Substance: LACOSAMIDE
     Dosage: 200 MILLIGRAM, QD (200 MG, 2X/DAY (BID))
  3. FAUSTAN [Concomitant]
     Active Substance: DIAZEPAM
     Indication: AGITATION
     Dosage: 10 MG, AS NEEDED (PRN)
  4. LEVETIRACETAM UCB [Suspect]
     Active Substance: LEVETIRACETAM
     Dosage: 1000 MILLIGRAM, QD (1000 MG, 2X/DAY (BID))
  5. LEVETIRACETAM UCB [Suspect]
     Active Substance: LEVETIRACETAM
     Dosage: 1000 MG, ONCE DAILY (QD)
  6. BRIVIACT [Suspect]
     Active Substance: BRIVARACETAM
     Indication: PRODUCT USED FOR UNKNOWN INDICATION
     Dosage: 100 MG, 2X/DAY (BID), (200 MG QD)
  7. VIMPAT [Suspect]
     Active Substance: LACOSAMIDE
     Indication: SEIZURE
     Dosage: 200 MG, 2X/DAY (BID)(400 MG, QD) (300-0-350MG)
  8. LEVETIRACETAM UCB [Suspect]
     Active Substance: LEVETIRACETAM
     Indication: SEIZURE
     Dosage: 2000 MILLIGRAM, QD,1000 MG, 2X/DAY (BID)
  9. LEVETIRACETAM UCB [Suspect]
     Active Substance: LEVETIRACETAM
     Dosage: 2, UNK, DAILY, INCREASED UP TO 1750 MG TWICE DAILY
  10. LEVETIRACETAM UCB [Suspect]
     Active Substance: LEVETIRACETAM
     Dosage: UNK, QD (INCREASED UP TO 1750 MG TWICE DAILY)
  11. LEVETIRACETAM. [Suspect]
     Active Substance: LEVETIRACETAM
     Indication: SEIZURE
     Dosage: 1000 MILLIGRAM, QD
  12. VIMPAT [Suspect]
     Active Substance: LACOSAMIDE
     Dosage: 300 MG, 2X/DAY (BID)(600 MG , QD)
  13. VIMPAT [Suspect]
     Active Substance: LACOSAMIDE
     Dosage: 300 MILLIGRAM, QD (300 MG, 2X/DAY (BID))

REACTIONS (10)
  - Palpitations [Unknown]
  - Off label use [Unknown]
  - Nightmare [Unknown]
  - Petit mal epilepsy [Unknown]
  - Feeling abnormal [Unknown]
  - Drug ineffective [Unknown]
  - Overdose [Unknown]
  - Seizure [Unknown]
  - Blood pressure increased [Unknown]
  - Aura [Unknown]

NARRATIVE: CASE EVENT DATE: 2015
